FAERS Safety Report 6923024-9 (Version None)
Quarter: 2010Q3

REPORT INFORMATION
  Report Type: 
  Country: None (occurrence: None)
  Receive Date: 20100813
  Receipt Date: 20100803
  Transmission Date: 20110219
  Serious: Yes (Other)
  Sender: FDA-Public Use
  Company Number: US-PFIZER INC-2010077929

PATIENT
  Sex: Female
  Weight: 99 kg

DRUGS (2)
  1. CHANTIX [Suspect]
     Indication: SMOKING CESSATION THERAPY
     Dosage: 0.5 MG, 1X/DAY
     Route: 048
     Dates: start: 20100601, end: 20100601
  2. CHANTIX [Suspect]
     Dosage: 1 MG, 2X/DAY
     Route: 048
     Dates: start: 20100601, end: 20100618

REACTIONS (7)
  - AGGRESSION [None]
  - ANGER [None]
  - CONFUSIONAL STATE [None]
  - HALLUCINATION [None]
  - MANIA [None]
  - PARANOIA [None]
  - SUICIDAL IDEATION [None]
